FAERS Safety Report 4714313-7 (Version None)
Quarter: 2005Q3

REPORT INFORMATION
  Report Type: 
  Country: None (occurrence: None)
  Receive Date: 20050714
  Receipt Date: 20050712
  Transmission Date: 20060218
  Serious: Yes (Death)
  Sender: FDA-Public Use
  Company Number: PHBS2005JP09929

PATIENT
  Age: 63 Year
  Sex: Male

DRUGS (11)
  1. VOLTAREN [Suspect]
     Dosage: 25 MG, TID
     Route: 048
     Dates: start: 20050127, end: 20050202
  2. TAXOL [Suspect]
     Indication: LUNG ADENOCARCINOMA
     Dosage: 160 MG CYCLE
     Route: 042
     Dates: start: 20050201, end: 20050301
  3. PARAPLATIN [Suspect]
     Indication: LUNG ADENOCARCINOMA
     Dosage: 450 MG CYCLE
     Route: 042
     Dates: start: 20050201, end: 20050301
  4. RESTAMIN [Concomitant]
     Dates: start: 20050201, end: 20050301
  5. GASTER [Concomitant]
     Dates: start: 20050201, end: 20050301
  6. KYTRIL [Concomitant]
     Dates: start: 20050201, end: 20050301
  7. RADIATION THERAPY [Concomitant]
     Dates: start: 20050128, end: 20050210
  8. MS CONTIN [Concomitant]
     Dates: start: 20050226, end: 20050301
  9. TERNELIN [Concomitant]
     Dates: start: 20050127, end: 20050306
  10. CYTOTEC [Concomitant]
     Dates: start: 20050127, end: 20050306
  11. DECADRON [Concomitant]
     Dates: start: 20050201, end: 20050305

REACTIONS (4)
  - BLOOD PRESSURE DECREASED [None]
  - INTESTINAL PERFORATION [None]
  - PERITONITIS [None]
  - PYREXIA [None]
